FAERS Safety Report 24155420 (Version 1)
Quarter: 2024Q3

REPORT INFORMATION
  Report Type: Spontaneous
  Country: US (occurrence: US)
  Receive Date: 20240731
  Receipt Date: 20240731
  Transmission Date: 20241017
  Serious: Yes (Disabling, Other)
  Sender: ALEMBIC
  Company Number: US-ALEMBIC PHARMACUETICALS LIMITED-2024SCAL001042

PATIENT

DRUGS (5)
  1. QUETIAPINE FUMARATE [Suspect]
     Active Substance: QUETIAPINE FUMARATE
     Indication: Depression
     Dosage: 300 UNK, QD
     Route: 065
  2. QUETIAPINE FUMARATE [Suspect]
     Active Substance: QUETIAPINE FUMARATE
     Indication: Anxiety
  3. PAROXETINE [Suspect]
     Active Substance: PAROXETINE
     Indication: Depression
     Dosage: 20 MILLIGRAM, QD
     Route: 065
  4. DIPHENHYDRAMINE [Suspect]
     Active Substance: DIPHENHYDRAMINE
     Indication: Pruritus
     Dosage: 25 MILLIGRAM, QD, PRN
     Route: 065
  5. SERTRALINE [Concomitant]
     Active Substance: SERTRALINE HYDROCHLORIDE
     Indication: Depression
     Dosage: 50 UNK, QD
     Route: 065

REACTIONS (11)
  - Pneumonitis aspiration [Unknown]
  - Unresponsive to stimuli [Unknown]
  - Decorticate posture [Unknown]
  - Brain injury [Unknown]
  - Cerebral hypoperfusion [Unknown]
  - Choking [Unknown]
  - Drug level increased [Unknown]
  - Blood pressure decreased [Unknown]
  - Sedation [Unknown]
  - Areflexia [Unknown]
  - Vomiting [Unknown]
